FAERS Safety Report 24853731 (Version 1)
Quarter: 2025Q1

REPORT INFORMATION
  Report Type: Spontaneous
  Country: US (occurrence: US)
  Receive Date: 20250117
  Receipt Date: 20250117
  Transmission Date: 20250408
  Serious: Yes (Other)
  Sender: NOVO NORDISK
  Company Number: US-NOVOPROD-1349122

PATIENT
  Age: 66 Year
  Sex: Female

DRUGS (1)
  1. NOVOLOG [Suspect]
     Active Substance: INSULIN ASPART
     Indication: Type 1 diabetes mellitus
     Route: 058

REACTIONS (3)
  - Deafness unilateral [Unknown]
  - Deafness [Unknown]
  - Visual impairment [Unknown]

NARRATIVE: CASE EVENT DATE: 20170101
